FAERS Safety Report 9423931 (Version 1)
Quarter: 2013Q3

REPORT INFORMATION
  Report Type: Spontaneous
  Country: US (occurrence: US)
  Receive Date: 20130729
  Receipt Date: 20130729
  Transmission Date: 20140515
  Serious: No
  Sender: FDA-Public Use
  Company Number: US-009507513-1307USA012265

PATIENT
  Age: 21 Year
  Sex: Female
  Weight: 90.7 kg

DRUGS (1)
  1. IMPLANON [Suspect]
     Indication: CONTRACEPTION
     Dosage: UNK, 1 ROD EVERY 3 YEARS
     Route: 059
     Dates: start: 20100714

REACTIONS (2)
  - Implant site pruritus [Unknown]
  - Incorrect drug administration duration [Unknown]
